FAERS Safety Report 7460518-4 (Version None)
Quarter: 2011Q2

REPORT INFORMATION
  Report Type: 
  Country: None (occurrence: None)
  Receive Date: 20110505
  Receipt Date: 20110406
  Transmission Date: 20111010
  Serious: Yes (Other)
  Sender: FDA-Public Use
  Company Number: US-BAYER-200934284NA

PATIENT
  Age: 59 Year
  Sex: Female
  Weight: 70.295 kg

DRUGS (14)
  1. LOPRESSOR [Concomitant]
  2. NITROGLYCERIN [Concomitant]
  3. LOVENOX [Concomitant]
  4. PROTAMINE SULFATE [Concomitant]
  5. ROCEPHIN [Concomitant]
  6. VERSED [Concomitant]
  7. MANNITOL [Concomitant]
  8. CAPTOPRIL [Concomitant]
  9. HEPARIN [Concomitant]
  10. TRASYLOL [Suspect]
     Indication: CORONARY ARTERY BYPASS
     Dosage: 1ML TEST DOSE, 200 ML LOADING DOSE THEN 50 ML/HOUR
     Route: 042
     Dates: start: 20060103, end: 20060103
  11. LOTREL [Concomitant]
  12. LASIX [Concomitant]
  13. RED BLOOD CELLS [Concomitant]
     Dosage: 3 UNITS
     Dates: start: 20060103
  14. VANCOMYCIN [Concomitant]

REACTIONS (12)
  - NERVOUSNESS [None]
  - MULTI-ORGAN FAILURE [None]
  - RENAL FAILURE [None]
  - DEPRESSION [None]
  - ANXIETY [None]
  - FEAR [None]
  - ANHEDONIA [None]
  - INJURY [None]
  - UNEVALUABLE EVENT [None]
  - RENAL INJURY [None]
  - EMOTIONAL DISTRESS [None]
  - PAIN [None]
